FAERS Safety Report 5793884-6 (Version None)
Quarter: 2008Q2

REPORT INFORMATION
  Report Type: 
  Country: None (occurrence: None)
  Receive Date: 20080627
  Receipt Date: 20080625
  Transmission Date: 20081010
  Serious: Yes (Other)
  Sender: FDA-Public Use
  Company Number: DE-BOEHRINGER INGELHEIM GMBH, GERMANY-2008-DE-03675DE

PATIENT
  Sex: Male
  Weight: 70 kg

DRUGS (1)
  1. SIFROL 0,7 MG [Suspect]
     Route: 048

REACTIONS (4)
  - DRUG ABUSE [None]
  - OVERDOSE [None]
  - SOMNOLENCE [None]
  - SUICIDE ATTEMPT [None]
